FAERS Safety Report 15238862 (Version 1)
Quarter: 2018Q4

REPORT INFORMATION
  Report Type: Other
  Country: US (occurrence: US)
  Receive Date: 20180803
  Receipt Date: 20180803
  Transmission Date: 20190204
  Serious: Yes (Other)
  Sender: FDA-Public Use
  Company Number: US-MARY KAY INC.-2053179

PATIENT
  Age: 60 Year
  Sex: Female

DRUGS (3)
  1. MARY KAY CC CREAM SUNSCREEN BROAD SPECTRUM SPF 15 LIGHT TO MEDIUM [Suspect]
     Active Substance: HOMOSALATE\OCTINOXATE\OXYBENZONE
     Route: 061
     Dates: start: 20180723, end: 20180723
  2. MARY KAY FOUNDATION PRIMER [Suspect]
     Active Substance: AVOBENZONE\HOMOSALATE\OCTISALATE\OCTOCRYLENE
     Indication: PROPHYLAXIS AGAINST SOLAR RADIATION
     Route: 061
     Dates: start: 20180723, end: 20180723
  3. MARY KAY TIMEWISE AGE MINIMIZE 3D DAY CREAM SPF 30 BROAD SP SUNSCREEN(OILY SKIN [Suspect]
     Active Substance: AVOBENZONE\HOMOSALATE\OCTISALATE\OCTOCRYLENE\OXYBENZONE
     Route: 061
     Dates: start: 20180723, end: 20180723

REACTIONS (3)
  - Burning sensation [Recovering/Resolving]
  - Urticaria [Recovering/Resolving]
  - Dyspnoea [Recovering/Resolving]

NARRATIVE: CASE EVENT DATE: 20180724
